FAERS Safety Report 7769094-X (Version None)
Quarter: 2011Q3

REPORT INFORMATION
  Report Type: 
  Country: None (occurrence: None)
  Receive Date: 20110922
  Receipt Date: 20100115
  Transmission Date: 20111222
  Serious: No
  Sender: FDA-Public Use
  Company Number: US-ASTRAZENECA-2009SE16776

PATIENT
  Age: 42 Year
  Sex: Female
  Weight: 68.5 kg

DRUGS (10)
  1. SEROQUEL [Suspect]
     Indication: BIPOLAR DISORDER
     Route: 048
     Dates: start: 20040101
  2. FOLIC ACID [Concomitant]
     Dates: start: 20050103
  3. SEROQUEL [Suspect]
     Indication: DEPRESSION
     Route: 048
     Dates: start: 20040101
  4. NEURONTIN [Concomitant]
     Indication: CONVULSION
     Dates: start: 20051201
  5. THIAMINE HCL [Concomitant]
     Dates: start: 20050103
  6. PREMARIN [Concomitant]
     Dates: start: 20050103
  7. PROTONIX [Concomitant]
     Dates: start: 20050103
  8. SEROQUEL [Suspect]
     Dosage: 25 MG TO 100 MG
     Route: 048
     Dates: start: 20050105
  9. SEROQUEL [Suspect]
     Dosage: 25 MG TO 100 MG
     Route: 048
     Dates: start: 20050105
  10. TRILEPTAL [Concomitant]
     Dates: start: 20050110

REACTIONS (2)
  - TYPE 2 DIABETES MELLITUS [None]
  - OBESITY [None]
